FAERS Safety Report 12448286 (Version 2)
Quarter: 2016Q3

REPORT INFORMATION
  Report Type: Spontaneous
  Country: US (occurrence: US)
  Receive Date: 20160608
  Receipt Date: 20160714
  Transmission Date: 20161109
  Serious: Yes (Life-Threatening)
  Sender: FDA-Public Use
  Company Number: US-009507513-1606USA001910

PATIENT
  Sex: Male

DRUGS (1)
  1. STROMECTOL [Suspect]
     Active Substance: IVERMECTIN
     Indication: STRONGYLOIDIASIS
     Dosage: ADMINISTERED VIA OG TUBE AND RECTALLY

REACTIONS (5)
  - Complication associated with device [Unknown]
  - Drug ineffective [Unknown]
  - Strongyloidiasis [Unknown]
  - Gastrointestinal disorder [Unknown]
  - Incorrect route of drug administration [Unknown]
